FAERS Safety Report 13779178 (Version 3)
Quarter: 2017Q3

REPORT INFORMATION
  Report Type: Spontaneous
  Country: US (occurrence: US)
  Receive Date: 20170721
  Receipt Date: 20170821
  Transmission Date: 20171127
  Serious: Yes (Other)
  Sender: FDA-Public Use
  Company Number: US-ALLERGAN-1729975US

PATIENT
  Age: 80 Year
  Sex: Female

DRUGS (3)
  1. CRESTOR [Concomitant]
     Active Substance: ROSUVASTATIN CALCIUM
     Indication: PRODUCT USED FOR UNKNOWN INDICATION
     Dosage: UNK, UNKNOWN
     Route: 048
  2. PROBENECID. [Concomitant]
     Active Substance: PROBENECID
     Indication: PRODUCT USED FOR UNKNOWN INDICATION
     Dosage: UNK UNK, UNKNOWN
     Route: 048
  3. VIBERZI [Suspect]
     Active Substance: ELUXADOLINE
     Indication: IRRITABLE BOWEL SYNDROME
     Dosage: 75 MG, BID
     Route: 048
     Dates: start: 20170713

REACTIONS (7)
  - Jaundice [Recovered/Resolved]
  - Pallor [Recovered/Resolved]
  - Vomiting [Recovered/Resolved]
  - Aspartate aminotransferase increased [Recovered/Resolved]
  - Blood bilirubin increased [Recovered/Resolved]
  - Nausea [Recovered/Resolved]
  - Diarrhoea [Recovered/Resolved]

NARRATIVE: CASE EVENT DATE: 20170717
